FAERS Safety Report 22302268 (Version 2)
Quarter: 2023Q2

REPORT INFORMATION
  Report Type: Spontaneous
  Country: SE (occurrence: SE)
  Receive Date: 20230510
  Receipt Date: 20230529
  Transmission Date: 20230721
  Serious: Yes (Hospitalization, Other)
  Sender: FDA-Public Use
  Company Number: SE-MYLANLABS-2023M1042632

PATIENT
  Age: 22 Year
  Sex: Male

DRUGS (30)
  1. ZOLPIDEM [Suspect]
     Active Substance: ZOLPIDEM TARTRATE
     Indication: Product used for unknown indication
     Dosage: 7.5 MILLIGRAM
     Route: 065
     Dates: start: 199801
  2. CAFFEINE [Suspect]
     Active Substance: CAFFEINE
     Indication: Product used for unknown indication
     Dosage: UNK
     Route: 065
  3. CITALOPRAM [Suspect]
     Active Substance: CITALOPRAM HYDROBROMIDE
     Indication: Schizoaffective disorder
     Dosage: UNK
     Route: 065
     Dates: start: 1997
  4. CITALOPRAM [Suspect]
     Active Substance: CITALOPRAM HYDROBROMIDE
     Dosage: UNK (CITALOPRAM WAS RE-INITIATED)
     Route: 065
     Dates: start: 200504
  5. CLOZAPINE [Suspect]
     Active Substance: CLOZAPINE
     Indication: Schizoaffective disorder
     Dosage: UNK (INCREASED THE DOSE)
     Route: 065
     Dates: start: 200110
  6. CLOZAPINE [Suspect]
     Active Substance: CLOZAPINE
     Dosage: 500 MILLIGRAM (INCREASED THE DOSE)
     Route: 065
     Dates: start: 200112
  7. CLOZAPINE [Suspect]
     Active Substance: CLOZAPINE
     Dosage: 600 MILLIGRAM (INCREASED THE DOSE)
     Route: 065
     Dates: start: 200207
  8. CLOZAPINE [Suspect]
     Active Substance: CLOZAPINE
     Dosage: 650 MILLIGRAM (DECREASED THE DOSE)
     Route: 065
     Dates: start: 200404
  9. CLOZAPINE [Suspect]
     Active Substance: CLOZAPINE
     Dosage: UNK (CLOZAPINE DOSAGE WAS REDUCED)
     Route: 065
     Dates: start: 200502
  10. CLOZAPINE [Suspect]
     Active Substance: CLOZAPINE
     Dosage: UNK (FURTHER TAPERING OF CLOZAPINE.)
     Route: 065
     Dates: start: 201906
  11. DESMOPRESSIN [Suspect]
     Active Substance: DESMOPRESSIN
     Indication: Enuresis
     Dosage: 0.2 MILLIGRAM
     Route: 065
     Dates: start: 200603
  12. LITHIUM [Suspect]
     Active Substance: LITHIUM
     Indication: Schizoaffective disorder
     Dosage: UNK (INTENTIONALLY DISCONTINUED THERAPY BY HIMSELF (INTENTIONAL DRUG MISUSE AND RE STARTED)
     Route: 065
  13. LITHIUM [Suspect]
     Active Substance: LITHIUM
     Dosage: 42 MILLIGRAM (6 X 42 MG; MONOTHERAPY)
     Route: 065
     Dates: start: 199811
  14. LITHIUM [Suspect]
     Active Substance: LITHIUM
     Dosage: 42 MILLIGRAM ( 6 X 42 MG)
     Route: 065
     Dates: start: 200002, end: 200012
  15. LITHIUM [Suspect]
     Active Substance: LITHIUM
     Dosage: UNK (RISPERIDONE AND LITHIUM WERE REINITIATED,)
     Route: 065
     Dates: start: 202109
  16. NEFAZODONE [Suspect]
     Active Substance: NEFAZODONE
     Indication: Schizoaffective disorder
     Dosage: 200 MILLIGRAM
     Route: 065
     Dates: start: 199801
  17. NEFAZODONE [Suspect]
     Active Substance: NEFAZODONE
     Indication: Psychotherapy
     Dosage: 100 MILLIGRAM
     Route: 065
     Dates: start: 199801, end: 1998
  18. NEFAZODONE [Suspect]
     Active Substance: NEFAZODONE
     Dosage: 400 MILLIGRAM
     Route: 065
     Dates: start: 199802
  19. RISPERIDONE [Suspect]
     Active Substance: RISPERIDONE
     Indication: Schizoaffective disorder
     Dosage: 3 MILLIGRAM
     Route: 065
     Dates: start: 199804
  20. RISPERIDONE [Suspect]
     Active Substance: RISPERIDONE
     Dosage: 4 MILLIGRAM (4 MILLIGRAM, TAPERED)
     Route: 065
     Dates: start: 200002
  21. RISPERIDONE [Suspect]
     Active Substance: RISPERIDONE
     Dosage: UNK
     Route: 065
     Dates: start: 200011
  22. RISPERIDONE [Suspect]
     Active Substance: RISPERIDONE
     Dosage: UNK (REBOXETINE 6MG WAS ADDED FOR 2 MONTHS TO RISPERIDONE)
     Route: 065
     Dates: start: 202103
  23. RISPERIDONE [Suspect]
     Active Substance: RISPERIDONE
     Dosage: UNK (RISPERIDONE REINITIATED)
     Route: 065
     Dates: start: 202109
  24. REBOXETINE MESYLATE [Suspect]
     Active Substance: REBOXETINE MESYLATE
     Indication: Schizoaffective disorder
     Dosage: 6 MILLIGRAM
     Route: 065
     Dates: start: 200103
  25. VENLAFAXINE HCL [Suspect]
     Active Substance: VENLAFAXINE HYDROCHLORIDE
     Indication: Schizoaffective disorder
     Dosage: 150 MILLIGRAM
     Route: 065
     Dates: start: 199803, end: 1998
  26. VENLAFAXINE HCL [Suspect]
     Active Substance: VENLAFAXINE HYDROCHLORIDE
     Dosage: 150 MILLIGRAM
     Route: 065
     Dates: start: 200011, end: 200012
  27. ZIPRASIDONE HYDROCHLORIDE [Suspect]
     Active Substance: ZIPRASIDONE HYDROCHLORIDE
     Indication: Schizoaffective disorder
     Dosage: 80 MILLIGRAM
     Route: 065
  28. PERPHENAZINE [Concomitant]
     Active Substance: PERPHENAZINE
     Indication: Schizoaffective disorder
     Dosage: 24 MILLIGRAM
     Route: 065
  29. PERPHENAZINE [Concomitant]
     Active Substance: PERPHENAZINE
     Dosage: UNK (AND EVENTUALLY TAPERED  AND DISCONTINUED)
     Route: 065
  30. VALPROATE [Concomitant]
     Active Substance: VALPROIC ACID
     Indication: Schizoaffective disorder
     Dosage: 80 MILLIGRAM
     Route: 065

REACTIONS (7)
  - Suicide attempt [Unknown]
  - Drug ineffective [Unknown]
  - Intentional overdose [Unknown]
  - Enuresis [Recovering/Resolving]
  - Constipation [Recovered/Resolved]
  - Salivary hypersecretion [Recovering/Resolving]
  - Toxicity to various agents [Unknown]

NARRATIVE: CASE EVENT DATE: 19980101
